FAERS Safety Report 17613248 (Version 1)
Quarter: 2020Q2

REPORT INFORMATION
  Report Type: Report from Study
  Country: None (occurrence: US)
  Receive Date: 20200401
  Receipt Date: 20200401
  Transmission Date: 20200713
  Serious: Yes (Hospitalization)
  Sender: FDA-Public Use
  Company Number: US-ABBVIE-20K-163-3342438-00

PATIENT
  Age: 83 Year
  Sex: Female

DRUGS (1)
  1. VENCLEXTA [Suspect]
     Active Substance: VENETOCLAX
     Indication: CHRONIC LYMPHOCYTIC LEUKAEMIA
     Route: 048
     Dates: start: 20200306

REACTIONS (7)
  - Rib fracture [Unknown]
  - Mental fatigue [Unknown]
  - Dyspnoea [Unknown]
  - Decreased activity [Unknown]
  - Contusion [Unknown]
  - Fall [Unknown]
  - Sternal fracture [Unknown]

NARRATIVE: CASE EVENT DATE: 202003
